FAERS Safety Report 9165308 (Version 1)
Quarter: 2013Q1

REPORT INFORMATION
  Report Type: Spontaneous
  Country: US (occurrence: None)
  Receive Date: 20130314
  Receipt Date: 20130314
  Transmission Date: 20140127
  Serious: Yes (Hospitalization)
  Sender: FDA-Public Use
  Company Number: None

PATIENT
  Sex: Female

DRUGS (1)
  1. BENZOYL PEROXIDE [Suspect]
     Route: 061

REACTIONS (2)
  - Anaphylactic shock [None]
  - Accidental exposure to product [None]
